FAERS Safety Report 9288972 (Version 1)
Quarter: 2013Q2

REPORT INFORMATION
  Report Type: Spontaneous
  Country: BR (occurrence: BR)
  Receive Date: 20130514
  Receipt Date: 20130514
  Transmission Date: 20140414
  Serious: Yes (Other)
  Sender: FDA-Public Use
  Company Number: BR-ABBOTT-13P-020-1088228-00

PATIENT
  Sex: Male

DRUGS (1)
  1. HUMIRA [Suspect]
     Indication: PRODUCT USED FOR UNKNOWN INDICATION

REACTIONS (4)
  - Liver disorder [Not Recovered/Not Resolved]
  - Histoplasmosis disseminated [Not Recovered/Not Resolved]
  - Immunosuppression [Unknown]
  - Spleen disorder [Not Recovered/Not Resolved]
